FAERS Safety Report 5595492-9 (Version None)
Quarter: 2008Q1

REPORT INFORMATION
  Report Type: 
  Country: None (occurrence: None)
  Receive Date: 20080116
  Receipt Date: 20080116
  Transmission Date: 20080703
  Serious: Yes (Life-Threatening, Disabling, Other)
  Sender: FDA-Public Use
  Company Number: None

PATIENT
  Age: 46 Year
  Sex: Female
  Weight: 60.3284 kg

DRUGS (1)
  1. NEURONTIN [Suspect]
     Indication: PAIN
     Dosage: 300 MG X 5-6 DAY ORALLY
     Route: 048

REACTIONS (7)
  - AMNESIA [None]
  - CHOKING [None]
  - COMA [None]
  - MENTAL IMPAIRMENT [None]
  - MOTOR DYSFUNCTION [None]
  - MUSCLE SPASMS [None]
  - SOMNAMBULISM [None]
